FAERS Safety Report 13513728 (Version 1)
Quarter: 2017Q2

REPORT INFORMATION
  Report Type: Spontaneous
  Country: US (occurrence: US)
  Receive Date: 20170504
  Receipt Date: 20170504
  Transmission Date: 20170830
  Serious: Yes (Other)
  Sender: FDA-Public Use
  Company Number: US-AMGEN-USASP2017064431

PATIENT
  Age: 36 Year
  Sex: Male

DRUGS (28)
  1. TRIGLIDE [Concomitant]
     Active Substance: FENOFIBRATE
     Dosage: 160 MG, QD
     Route: 048
     Dates: start: 20170313
  2. KEPPRA [Concomitant]
     Active Substance: LEVETIRACETAM
     Dosage: 500 MG, BID
     Route: 048
  3. ZYLOPRIM [Concomitant]
     Active Substance: ALLOPURINOL
     Dosage: 300 MG, QD
     Route: 048
  4. NEURONTIN [Concomitant]
     Active Substance: GABAPENTIN
     Dosage: 300 MG, TID
     Dates: start: 20170313
  5. LEXAPRO [Concomitant]
     Active Substance: ESCITALOPRAM OXALATE
     Dosage: 10 MG, QD
     Route: 048
     Dates: start: 20170317
  6. PRINZIDE [Concomitant]
     Active Substance: HYDROCHLOROTHIAZIDE\LISINOPRIL
     Dosage: UNK
  7. ZESTORETIC [Concomitant]
     Active Substance: HYDROCHLOROTHIAZIDE\LISINOPRIL
  8. VITAMIN B6 [Concomitant]
     Active Substance: PYRIDOXINE HYDROCHLORIDE
     Dosage: 50 MG, QD
     Route: 048
  9. PNEUMOCOCCAL CONJUGATE VACCINE [Concomitant]
     Active Substance: PNEUMOCOCCAL VACCINE POLYVALENT
     Dosage: UNK
     Dates: start: 20140826
  10. HYDROCORTISONE. [Concomitant]
     Active Substance: HYDROCORTISONE
     Dosage: UNK UNK, BID
     Route: 061
  11. OXYCODONE [Concomitant]
     Active Substance: OXYCODONE
     Dosage: 20 MG, TID
     Route: 048
  12. POTASSIUM CHLORIDE. [Concomitant]
     Active Substance: POTASSIUM CHLORIDE
     Dosage: 20 MEQ, BID
  13. LEVAQUIN [Concomitant]
     Active Substance: LEVOFLOXACIN
     Dosage: 250 MG, QD
     Route: 048
     Dates: start: 20161015
  14. OXYCODONE [Concomitant]
     Active Substance: OXYCODONE
     Dosage: 80 MG, Q8H
     Route: 048
  15. COMPAZINE [Concomitant]
     Active Substance: PROCHLORPERAZINE MALEATE
     Dosage: 5 MG, Q6H
     Route: 048
  16. LIDOCAINE. [Concomitant]
     Active Substance: LIDOCAINE
     Dosage: 5 %, QD
     Route: 061
     Dates: start: 20170313
  17. BLINCYTO [Suspect]
     Active Substance: BLINATUMOMAB
     Indication: B PRECURSOR TYPE ACUTE LEUKAEMIA
     Dosage: UNK UNK, CYCLICAL
     Route: 065
  18. MAG-OX [Concomitant]
     Active Substance: MAGNESIUM OXIDE
     Dosage: 400 MG, BID
     Route: 048
     Dates: start: 20170317
  19. DELTASONE [Concomitant]
     Active Substance: PREDNISONE
     Dosage: 50 MG, BID
     Route: 048
  20. FLU [Concomitant]
     Active Substance: INFLUENZA VIRUS VACCINE
     Dosage: UNK
     Dates: start: 20161014
  21. MS CONTIN [Concomitant]
     Active Substance: MORPHINE SULFATE
     Dosage: 60 MG, TID
     Route: 048
  22. BACTRIM DS [Concomitant]
     Active Substance: SULFAMETHOXAZOLE\TRIMETHOPRIM
     Dosage: 800-160MG, TWO TABLET 2 TIMES/WK
  23. VFEND [Concomitant]
     Active Substance: VORICONAZOLE
     Dosage: 200 MG, Q12H
     Route: 048
  24. FLU [Concomitant]
     Active Substance: INFLUENZA VIRUS VACCINE
     Dosage: UNK
     Dates: start: 20151023
  25. INFLUENZA [Concomitant]
     Active Substance: INFLUENZA VIRUS VACCINE
     Dosage: UNK
     Dates: start: 20140210
  26. XARELTO [Concomitant]
     Active Substance: RIVAROXABAN
  27. ZOVIRAX [Concomitant]
     Active Substance: ACYCLOVIR
     Dosage: 400 MG, BID
     Route: 048
  28. ATIVAN [Concomitant]
     Active Substance: LORAZEPAM
     Dosage: 0.5 MG, Q8H
     Dates: start: 20170330

REACTIONS (19)
  - Seizure [Unknown]
  - Hypotension [Unknown]
  - Pancytopenia [Unknown]
  - Blood sodium decreased [Unknown]
  - Blood glucose increased [Unknown]
  - Blood alkaline phosphatase increased [Unknown]
  - Retinal haemorrhage [Not Recovered/Not Resolved]
  - Blood creatinine decreased [Unknown]
  - Blood lactate dehydrogenase increased [Unknown]
  - Pain [Unknown]
  - Blood calcium decreased [Unknown]
  - Bone pain [Unknown]
  - Atelectasis [Unknown]
  - Blood albumin decreased [Unknown]
  - Blood magnesium decreased [Unknown]
  - Blood chloride decreased [Unknown]
  - Superior sagittal sinus thrombosis [Unknown]
  - Drug effect incomplete [Unknown]
  - Pyrexia [Unknown]

NARRATIVE: CASE EVENT DATE: 20170310
